FAERS Safety Report 8449731-7 (Version None)
Quarter: 2012Q2

REPORT INFORMATION
  Report Type: 
  Country: None (occurrence: None)
  Receive Date: 20120620
  Receipt Date: 20120613
  Transmission Date: 20120825
  Serious: No
  Sender: FDA-Public Use
  Company Number: US-PFIZER INC-2012136564

PATIENT
  Sex: Female
  Weight: 61.224 kg

DRUGS (5)
  1. OMEPRAZOLE [Concomitant]
     Indication: GASTROOESOPHAGEAL REFLUX DISEASE
     Dosage: 10 MG, 1X/DAY
  2. MOTRIN [Concomitant]
     Dosage: UNK
  3. PREMPRO [Suspect]
     Indication: POSTMENOPAUSE
     Dosage: 0.625/2.5MG, DAILY
     Route: 048
     Dates: end: 20120501
  4. PREMPHASE 14/14 [Suspect]
     Indication: POSTMENOPAUSE
     Dosage: 0.625/5 MG, ONCE
     Route: 048
     Dates: start: 20120613
  5. MICARDIS [Concomitant]
     Indication: HYPERTENSION
     Dosage: 40 MG, 1X/DAY

REACTIONS (1)
  - MEDICATION RESIDUE [None]
